FAERS Safety Report 5584201-5 (Version None)
Quarter: 2008Q1

REPORT INFORMATION
  Report Type: 
  Country: None (occurrence: None)
  Receive Date: 20080103
  Receipt Date: 20071214
  Transmission Date: 20080703
  Serious: Yes (Other)
  Sender: FDA-Public Use
  Company Number: PAR_01826_2007

PATIENT
  Age: 78 Year
  Sex: Male

DRUGS (2)
  1. IBUPROFEN [Suspect]
     Indication: ARTHRALGIA
     Dosage: DF ORAL
     Route: 048
  2. BISOPROLOL [Concomitant]

REACTIONS (6)
  - BLOOD IMMUNOGLOBULIN E DECREASED [None]
  - DRUG HYPERSENSITIVITY [None]
  - LEUKOCYTOSIS [None]
  - MENINGITIS ASEPTIC [None]
  - PYREXIA [None]
  - SOMNOLENCE [None]
